FAERS Safety Report 10754759 (Version 3)
Quarter: 2015Q2

REPORT INFORMATION
  Report Type: Spontaneous
  Country: US (occurrence: US)
  Receive Date: 20150202
  Receipt Date: 20150407
  Transmission Date: 20150821
  Serious: No
  Sender: FDA-Public Use
  Company Number: US-PFIZER INC-2015039982

PATIENT
  Age: 66 Year
  Sex: Female
  Weight: 58 kg

DRUGS (10)
  1. LISINOPRIL. [Concomitant]
     Active Substance: LISINOPRIL
     Dosage: 20 MG, 2X/DAY
  2. PRAVASTATIN [Concomitant]
     Active Substance: PRAVASTATIN\PRAVASTATIN SODIUM
     Dosage: 20 MG, 1X/DAY
  3. TEMAZEPAM. [Concomitant]
     Active Substance: TEMAZEPAM
     Dosage: 30 MG, 1X/DAY
  4. TOPAMAX [Concomitant]
     Active Substance: TOPIRAMATE
     Dosage: 50 MG, 1X/DAY
  5. BENZONATATE. [Concomitant]
     Active Substance: BENZONATATE
     Indication: NASOPHARYNGITIS
     Dosage: UNK, AS NEEDED
  6. HYDROCHLOROTHIAZID [Concomitant]
     Active Substance: HYDROCHLOROTHIAZIDE
     Dosage: 25 MG, 1X/DAY
  7. METOPROLOL TARTRATE. [Suspect]
     Active Substance: METOPROLOL TARTRATE
     Indication: HYPERTENSION
     Dosage: ONE HALF TABLET (25MG), 2X/DAY
  8. PREMARIN [Concomitant]
     Active Substance: ESTROGENS, CONJUGATED
     Indication: HYSTERECTOMY
     Dosage: 0.625 MG, DAILY
     Dates: start: 1995
  9. PROTONIX [Suspect]
     Active Substance: PANTOPRAZOLE SODIUM
     Indication: EROSIVE OESOPHAGITIS
     Dosage: 40 MG, DAILY
  10. LEVOTHYROXINE [Concomitant]
     Active Substance: LEVOTHYROXINE
     Dosage: 50 ?G, DAILY

REACTIONS (3)
  - Sleep apnoea syndrome [Not Recovered/Not Resolved]
  - Nasal disorder [Recovering/Resolving]
  - Herpes simplex [Recovering/Resolving]
